FAERS Safety Report 14732571 (Version 4)
Quarter: 2018Q4

REPORT INFORMATION
  Report Type: Spontaneous
  Country: FR (occurrence: FR)
  Receive Date: 20180409
  Receipt Date: 20181018
  Transmission Date: 20190204
  Serious: Yes (Hospitalization, Other)
  Sender: FDA-Public Use
  Company Number: FR-009507513-1804FRA001984

PATIENT
  Sex: Female

DRUGS (2)
  1. CELESTENE [BETAMETHASONE] [Suspect]
     Active Substance: BETAMETHASONE
     Indication: DERMATITIS ATOPIC
     Dosage: 15 TO 20 DROPS QD
     Route: 048
  2. CELESTENE [BETAMETHASONE] [Suspect]
     Active Substance: BETAMETHASONE
     Indication: ASTHMA
     Dosage: UNK
     Route: 048
     Dates: start: 1997

REACTIONS (6)
  - Arthropathy [Not Recovered/Not Resolved]
  - Off label use [Unknown]
  - Gastrointestinal motility disorder [Recovering/Resolving]
  - Therapeutic response unexpected [Unknown]
  - Drug dependence [Unknown]
  - Cardiovascular disorder [Not Recovered/Not Resolved]
